FAERS Safety Report 5510910-X (Version None)
Quarter: 2007Q4

REPORT INFORMATION
  Report Type: 
  Country: None (occurrence: None)
  Receive Date: 20071102
  Receipt Date: 20071022
  Transmission Date: 20080405
  Serious: Yes (Other)
  Sender: FDA-Public Use
  Company Number: AEUSA200700158

PATIENT
  Age: 19 Year
  Sex: Female
  Weight: 113.3993 kg

DRUGS (10)
  1. GAMUNEX [Suspect]
     Indication: VASCULITIS CEREBRAL
     Dosage: 25 GM; 1X; IV
     Route: 042
     Dates: start: 20070611, end: 20070620
  2. GAMUNEX [Suspect]
  3. COGENTIN [Concomitant]
  4. DEPAKOTE [Concomitant]
  5. SEROQUEL [Concomitant]
  6. ABILIFY [Concomitant]
  7. ACETAZOLAMIDE [Concomitant]
  8. TOPAMAX [Concomitant]
  9. BENADRYL [Concomitant]
  10. DIAMOX [Concomitant]

REACTIONS (5)
  - DRUG HYPERSENSITIVITY [None]
  - ERYTHEMA [None]
  - PETECHIAE [None]
  - RASH [None]
  - URINARY TRACT INFECTION [None]
